FAERS Safety Report 5165124-2 (Version None)
Quarter: 2006Q4

REPORT INFORMATION
  Report Type: 
  Country: None (occurrence: None)
  Receive Date: 20061127
  Receipt Date: 20061109
  Transmission Date: 20070319
  Serious: Yes (Hospitalization, Other)
  Sender: FDA-Public Use
  Company Number: HQWYE308113NOV06

PATIENT
  Age: 65 Year
  Sex: Female

DRUGS (3)
  1. ARTANE [Suspect]
     Indication: PARKINSON'S DISEASE
     Dosage: 2 MG 1X PER 1 DAY ORAL
     Route: 048
  2. LEVODOPA [Suspect]
     Indication: PARKINSON'S DISEASE
     Dosage: 200 MG 1X PER 1 DAY ORAL
     Route: 048
  3. SELEGILINE HYDROCHLORIDE [Suspect]
     Indication: PARKINSON'S DISEASE
     Dosage: SEE IMAGE
     Route: 048

REACTIONS (11)
  - COGNITIVE DISORDER [None]
  - CONDITION AGGRAVATED [None]
  - DELIRIUM [None]
  - DEPRESSED LEVEL OF CONSCIOUSNESS [None]
  - GAIT DISTURBANCE [None]
  - HALLUCINATION, AUDITORY [None]
  - HALLUCINATION, VISUAL [None]
  - HYPERTENSION [None]
  - MENTAL DISORDER [None]
  - PARKINSON'S DISEASE [None]
  - PSYCHOTIC DISORDER [None]
